FAERS Safety Report 9493181 (Version 2)
Quarter: 2013Q4

REPORT INFORMATION
  Report Type: Report from Study
  Country: DE (occurrence: DE)
  Receive Date: 20130902
  Receipt Date: 20131016
  Transmission Date: 20140711
  Serious: Yes (Other)
  Sender: FDA-Public Use
  Company Number: DE-BRISTOL-MYERS SQUIBB COMPANY-19237031

PATIENT
  Age: 73 Year
  Sex: Female

DRUGS (1)
  1. CETUXIMAB [Suspect]
     Indication: SQUAMOUS CELL CARCINOMA OF HEAD AND NECK
     Dosage: 6JUN12, LOADING DOSE 400MG/M2 .RECENT DOSE:27 JUN 2012,4JL12
     Route: 042
     Dates: start: 20120606

REACTIONS (1)
  - Radiation dysphagia [Recovered/Resolved]
